FAERS Safety Report 5289857-2 (Version None)
Quarter: 2007Q2

REPORT INFORMATION
  Report Type: 
  Country: None (occurrence: None)
  Receive Date: 20070406
  Receipt Date: 20070326
  Transmission Date: 20071010
  Serious: Yes (Death, Hospitalization, Other)
  Sender: FDA-Public Use
  Company Number: US-PFIZER INC-2006126239

PATIENT
  Sex: Male

DRUGS (2)
  1. CELEBREX [Suspect]
     Indication: PAIN
     Dates: start: 20010816, end: 20050701
  2. VIOXX [Suspect]
     Dates: start: 20020625, end: 20040817

REACTIONS (3)
  - DEPRESSION [None]
  - INSOMNIA [None]
  - ISCHAEMIC STROKE [None]
